FAERS Safety Report 6330360-6 (Version None)
Quarter: 2009Q3

REPORT INFORMATION
  Report Type: 
  Country: None (occurrence: None)
  Receive Date: 20090827
  Receipt Date: 20090821
  Transmission Date: 20100115
  Serious: Yes (Other)
  Sender: FDA-Public Use
  Company Number: FR-WYE-G04280009

PATIENT
  Sex: Female

DRUGS (3)
  1. EFFEXOR [Suspect]
     Indication: MIGRAINE
     Dosage: 37.5 MG 2 TIMES DAILY, PROGRESSIVELY TAPERED
     Route: 048
     Dates: start: 20090101, end: 20090701
  2. PROPRANOLOL HCL [Concomitant]
     Indication: MIGRAINE
     Dosage: UNKNOWN
     Dates: end: 20090101
  3. PROPRANOLOL HCL [Concomitant]
     Dosage: UNKNOWN; DOSE HALF-REDUCED
     Dates: start: 20090101

REACTIONS (5)
  - ANXIETY [None]
  - DRUG INEFFECTIVE [None]
  - DRUG WITHDRAWAL SYNDROME [None]
  - SUICIDAL IDEATION [None]
  - WEIGHT INCREASED [None]
